FAERS Safety Report 4367196-1 (Version None)
Quarter: 2004Q2

REPORT INFORMATION
  Report Type: 
  Country: None (occurrence: None)
  Receive Date: 20040524
  Receipt Date: 20040518
  Transmission Date: 20050107
  Serious: Yes (Death)
  Sender: FDA-Public Use
  Company Number: US-JNJFOC-20030906559

PATIENT
  Age: 78 Year
  Sex: Female
  Weight: 47.6277 kg

DRUGS (3)
  1. REMICADE [Suspect]
     Indication: RHEUMATOID ARTHRITIS
     Dosage: INTRAVENOUS
     Route: 042
  2. TYLENOL [Concomitant]
  3. BENGAY (ANALGESIC BALM) [Concomitant]

REACTIONS (2)
  - FEELING ABNORMAL [None]
  - THERAPY NON-RESPONDER [None]
